FAERS Safety Report 8696093 (Version 2)
Quarter: 2013Q4

REPORT INFORMATION
  Report Type: Spontaneous
  Country: US (occurrence: US)
  Receive Date: 20120801
  Receipt Date: 20131101
  Transmission Date: 20140711
  Serious: No
  Sender: FDA-Public Use
  Company Number: US-009507513-1207USA009977

PATIENT
  Age: 68 Year
  Sex: Male

DRUGS (2)
  1. VYTORIN [Suspect]
     Route: 048
  2. ALEVE [Suspect]
     Dosage: 1 TABLET, PRN
     Route: 048

REACTIONS (2)
  - Initial insomnia [Unknown]
  - Somnolence [Unknown]
